FAERS Safety Report 6530432-7 (Version None)
Quarter: 2010Q1

REPORT INFORMATION
  Report Type: 
  Country: None (occurrence: None)
  Receive Date: 20100107
  Receipt Date: 20091231
  Transmission Date: 20100710
  Serious: Yes (Hospitalization, Other)
  Sender: FDA-Public Use
  Company Number: US-MERCK-0903USA04212

PATIENT
  Age: 63 Year
  Sex: Female

DRUGS (5)
  1. FOSAMAX [Suspect]
     Indication: OSTEOPOROSIS
     Route: 048
     Dates: start: 19980101, end: 20061001
  2. FOSAMAX [Suspect]
     Route: 048
     Dates: start: 20011001, end: 20061001
  3. FOSAMAX [Suspect]
     Route: 048
     Dates: start: 20000301, end: 20010101
  4. FOSAMAX [Suspect]
     Route: 048
     Dates: start: 20010101
  5. PREMARIN [Concomitant]
     Indication: MENOPAUSE
     Route: 065
     Dates: start: 19900101, end: 20050101

REACTIONS (47)
  - ACNE [None]
  - BLADDER IRRITATION [None]
  - BLOOD CHOLESTEROL INCREASED [None]
  - BONE DENSITY DECREASED [None]
  - BONE GRAFT [None]
  - CATARACT [None]
  - CHEST PAIN [None]
  - DENTAL CARIES [None]
  - DEPRESSION [None]
  - DEVICE FAILURE [None]
  - DRUG HYPERSENSITIVITY [None]
  - DRUG INEFFECTIVE [None]
  - FAECAL INCONTINENCE [None]
  - FALL [None]
  - FATIGUE [None]
  - FEELING JITTERY [None]
  - FIBROCYSTIC BREAST DISEASE [None]
  - FISTULA [None]
  - GENERALISED ANXIETY DISORDER [None]
  - GINGIVAL DISORDER [None]
  - HYPERCHOLESTEROLAEMIA [None]
  - HYPERTENSION [None]
  - HYPERTONIC BLADDER [None]
  - INCORRECT DOSE ADMINISTERED [None]
  - INSOMNIA [None]
  - JOINT INJURY [None]
  - MENINGIOMA [None]
  - MENISCUS LESION [None]
  - MUSCULOSKELETAL PAIN [None]
  - OBSESSIVE-COMPULSIVE DISORDER [None]
  - OPTIC DISC DISORDER [None]
  - ORAL INFECTION [None]
  - OSTEOARTHRITIS [None]
  - OSTEONECROSIS [None]
  - OSTEOPENIA [None]
  - PAIN [None]
  - PERIODONTAL DISEASE [None]
  - SOCIAL PHOBIA [None]
  - TOOTH DISORDER [None]
  - TOOTH LOSS [None]
  - URINARY INCONTINENCE [None]
  - UTERINE DISORDER [None]
  - UTERINE POLYP [None]
  - UTERINE PROLAPSE [None]
  - VAGINAL INFECTION [None]
  - VITAMIN D DEFICIENCY [None]
  - WRIST FRACTURE [None]
